FAERS Safety Report 6966288-8 (Version None)
Quarter: 2010Q3

REPORT INFORMATION
  Report Type: 
  Country: None (occurrence: None)
  Receive Date: 20100903
  Receipt Date: 20100824
  Transmission Date: 20110219
  Serious: Yes (Hospitalization)
  Sender: FDA-Public Use
  Company Number: PHHY2010MY11232

PATIENT
  Age: 23 Year
  Sex: Male
  Weight: 40 kg

DRUGS (1)
  1. CERTICAN [Suspect]
     Indication: KIDNEY TRANSPLANT REJECTION
     Dosage: 1.5 MG, BID
     Dates: start: 20091201, end: 20100201

REACTIONS (2)
  - NEPHRITIS [None]
  - PROTEINURIA [None]
